FAERS Safety Report 6235566-2 (Version None)
Quarter: 2009Q2

REPORT INFORMATION
  Report Type: 
  Country: None (occurrence: None)
  Receive Date: 20090616
  Receipt Date: 20090601
  Transmission Date: 20091009
  Serious: Yes (Other)
  Sender: FDA-Public Use
  Company Number: A-US2009-25675

PATIENT
  Age: 14 Month
  Sex: Female

DRUGS (4)
  1. VENTAVIS [Suspect]
     Indication: PULMONARY ARTERIAL HYPERTENSION
     Dosage: 0.2 UG/KG; RESPIRATORY
     Route: 055
  2. OXYGEN (OXYGEN) [Concomitant]
  3. PENTOBARBITAL CAP [Concomitant]
  4. NITRIC OXIDE [Concomitant]

REACTIONS (3)
  - PARADOXICAL DRUG REACTION [None]
  - PULMONARY ARTERIAL PRESSURE INCREASED [None]
  - PULMONARY VASCULAR RESISTANCE ABNORMALITY [None]
